FAERS Safety Report 10744430 (Version 1)
Quarter: 2015Q1

REPORT INFORMATION
  Report Type: Spontaneous
  Country: US (occurrence: None)
  Receive Date: 20150126
  Receipt Date: 20150126
  Transmission Date: 20150721
  Serious: Yes (Death)
  Sender: FDA-Public Use
  Company Number: None

PATIENT
  Age: 64 Year
  Sex: Male
  Weight: 104.33 kg

DRUGS (3)
  1. METOPROLOL 25 MG [Suspect]
     Active Substance: METOPROLOL
     Indication: ATRIAL FIBRILLATION
     Route: 048
     Dates: start: 20141119, end: 20141208
  2. METOPROLOL 25 MG [Suspect]
     Active Substance: METOPROLOL
     Indication: HYPERTENSION
     Route: 048
     Dates: start: 20141119, end: 20141208
  3. METOPROLOL 25 MG [Suspect]
     Active Substance: METOPROLOL
     Indication: CARDIAC FAILURE
     Route: 048
     Dates: start: 20141119, end: 20141208

REACTIONS (7)
  - Diarrhoea [None]
  - Hypotension [None]
  - Dizziness [None]
  - Abdominal pain upper [None]
  - Neck pain [None]
  - Dyspepsia [None]
  - Heart rate decreased [None]

NARRATIVE: CASE EVENT DATE: 20141209
